FAERS Safety Report 14832023 (Version 1)
Quarter: 2018Q2

REPORT INFORMATION
  Report Type: Report from Study
  Country: IT (occurrence: IT)
  Receive Date: 20180501
  Receipt Date: 20180501
  Transmission Date: 20180711
  Serious: Yes (Death, Other)
  Sender: FDA-Public Use
  Company Number: IT-BAYER-2018-079507

PATIENT
  Age: 67 Year
  Sex: Female

DRUGS (8)
  1. ASA [Suspect]
     Active Substance: ASPIRIN
     Dosage: UNK
  2. HYDROXYCHLOROQUINE [Suspect]
     Active Substance: HYDROXYCHLOROQUINE
     Dosage: UNK
  3. CELECOXIB. [Interacting]
     Active Substance: CELECOXIB
     Dosage: UNK
  4. HYDROCHLOROTHIAZIDE. [Suspect]
     Active Substance: HYDROCHLOROTHIAZIDE
     Dosage: UNK
  5. LORAZEPAM. [Suspect]
     Active Substance: LORAZEPAM
     Dosage: UNK
  6. INFLUENZA VACCINE INACTIVATED [Interacting]
     Active Substance: INFLUENZA VIRUS VACCINE
     Dosage: UNK
  7. WARFARIN [Interacting]
     Active Substance: WARFARIN
     Dosage: UNK
  8. MONTELUKAST [Suspect]
     Active Substance: MONTELUKAST SODIUM
     Dosage: UNK

REACTIONS (9)
  - International normalised ratio decreased [Fatal]
  - Death [Fatal]
  - Drug interaction [Fatal]
  - Haemoptysis [Fatal]
  - Platelet count decreased [Fatal]
  - Drug administration error [Fatal]
  - Contusion [Fatal]
  - Pyrexia [Fatal]
  - Labelled drug-drug interaction medication error [Fatal]
